FAERS Safety Report 15932739 (Version 2)
Quarter: 2019Q4

REPORT INFORMATION
  Report Type: Spontaneous
  Country: US (occurrence: US)
  Receive Date: 20190207
  Receipt Date: 20191004
  Transmission Date: 20200122
  Serious: Yes (Other)
  Sender: FDA-Public Use
  Company Number: US-JNJFOC-20190203963

PATIENT
  Age: 60 Year
  Sex: Male

DRUGS (1)
  1. INVOKANA [Suspect]
     Active Substance: CANAGLIFLOZIN
     Indication: TYPE 2 DIABETES MELLITUS
     Route: 048
     Dates: start: 20130909

REACTIONS (6)
  - Neuropathic arthropathy [Unknown]
  - Acquired claw toe [Unknown]
  - Osteoarthritis [Unknown]
  - Skin ulcer [Unknown]
  - Osteomyelitis [Unknown]
  - Toe amputation [Unknown]

NARRATIVE: CASE EVENT DATE: 20140305
